FAERS Safety Report 9153564 (Version 1)
Quarter: 2013Q1

REPORT INFORMATION
  Report Type: Spontaneous
  Country: SG (occurrence: None)
  Receive Date: 20130204
  Receipt Date: 20130204
  Transmission Date: 20140127
  Serious: Yes (Hospitalization, Other)
  Sender: FDA-Public Use
  Company Number: FK201300239

PATIENT
  Age: 64 Year
  Sex: Male

DRUGS (2)
  1. AMIODARONE HCL (MANUFACTURER UNKNOWN) (AMIODARONE HYDROCHLORIDE) [Suspect]
     Indication: ATRIAL FIBRILLATION
     Route: 042
  2. FUROSEMIDE (FUROSEMIDE) [Concomitant]

REACTIONS (11)
  - Ischaemic stroke [None]
  - Coagulopathy [None]
  - Transaminases increased [None]
  - Thrombocytopenia [None]
  - Renal failure acute [None]
  - Cardiac failure congestive [None]
  - Fluid overload [None]
  - Prothrombin time prolonged [None]
  - International normalised ratio increased [None]
  - Hyperbilirubinaemia [None]
  - Activated partial thromboplastin time prolonged [None]
